FAERS Safety Report 14788795 (Version 1)
Quarter: 2018Q2

REPORT INFORMATION
  Report Type: Spontaneous
  Country: US (occurrence: US)
  Receive Date: 20180423
  Receipt Date: 20180423
  Transmission Date: 20180711
  Serious: No
  Sender: FDA-Public Use
  Company Number: US-AUROBINDO-AUR-APU-2018-010922

PATIENT
  Sex: Male

DRUGS (1)
  1. MOXIFLOXACIN HYDROCHLORIDE TABLETS 400MG [Suspect]
     Active Substance: MOXIFLOXACIN HYDROCHLORIDE
     Indication: DIVERTICULITIS
     Dosage: UNK
     Route: 065
     Dates: start: 20180223

REACTIONS (1)
  - Wrong technique in product usage process [Unknown]
